FAERS Safety Report 19146984 (Version 1)
Quarter: 2021Q2

REPORT INFORMATION
  Report Type: Spontaneous
  Country: NO (occurrence: NO)
  Receive Date: 20210416
  Receipt Date: 20210416
  Transmission Date: 20210717
  Serious: Yes (Hospitalization)
  Sender: FDA-Public Use
  Company Number: NO-SAMSUNG BIOEPIS-SB-2021-09038

PATIENT
  Age: 26 Year
  Sex: Male

DRUGS (5)
  1. INFLIXIMAB [Suspect]
     Active Substance: INFLIXIMAB
     Indication: COLITIS ULCERATIVE
     Dosage: INITIALLY 400 MG (DOSE INTERVAL NOT STATED). FROM SEPTEMBER 2020, DOSE INCREASED TO 800 MG EVERY FOU
     Route: 065
     Dates: start: 202005
  2. INFLIXIMAB [Suspect]
     Active Substance: INFLIXIMAB
     Route: 065
     Dates: start: 202009, end: 20201027
  3. ADALIMUMAB [Suspect]
     Active Substance: ADALIMUMAB
     Indication: COLITIS ULCERATIVE
     Route: 065
     Dates: start: 202002, end: 202005
  4. MEZAVANT [Concomitant]
     Active Substance: MESALAMINE
     Indication: COLITIS ULCERATIVE
     Dosage: UNKNOWN
     Route: 065
  5. PREDNISOLONE. [Concomitant]
     Active Substance: PREDNISOLONE
     Indication: COLITIS ULCERATIVE
     Dosage: UNKNOWN
     Route: 048
     Dates: end: 2020

REACTIONS (9)
  - Colitis [Unknown]
  - Cough [Recovered/Resolved]
  - Lung infiltration [Recovering/Resolving]
  - Influenza like illness [Recovered/Resolved]
  - Product use issue [Unknown]
  - Dyspnoea exertional [Recovering/Resolving]
  - Drug ineffective [Unknown]
  - General physical health deterioration [Recovering/Resolving]
  - Mononeuropathy multiplex [Not Recovered/Not Resolved]

NARRATIVE: CASE EVENT DATE: 202008
